FAERS Safety Report 7478960-4 (Version None)
Quarter: 2011Q2

REPORT INFORMATION
  Report Type: 
  Country: None (occurrence: None)
  Receive Date: 20110504
  Receipt Date: 20110425
  Transmission Date: 20111010
  Serious: Yes (Hospitalization, Other)
  Sender: FDA-Public Use
  Company Number: PD 144

PATIENT
  Age: 41 Year
  Sex: Male
  Weight: 141 kg

DRUGS (6)
  1. LEVETIRACETAM [Suspect]
     Indication: EPILEPSY
     Dosage: 63 GRAMS (OVERDOSE)
  2. CARBAMAZEPINE [Concomitant]
  3. AMITRIPTYLINE HCL [Concomitant]
  4. CLORAZEPATE DIPOTASSIUM [Concomitant]
  5. CITALOPRAM HYDROBROMIDE [Concomitant]
  6. LAMOTRIGINE [Concomitant]

REACTIONS (6)
  - ATAXIA [None]
  - THROMBOCYTOPENIA [None]
  - OVERDOSE [None]
  - GAIT DISTURBANCE [None]
  - VISION BLURRED [None]
  - LEUKOPENIA [None]
